FAERS Safety Report 7923653-X (Version None)
Quarter: 2011Q4

REPORT INFORMATION
  Report Type: 
  Country: None (occurrence: None)
  Receive Date: 20111117
  Receipt Date: 20110207
  Transmission Date: 20120403
  Serious: No
  Sender: FDA-Public Use
  Company Number: US-AMGEN-USASP2011007556

PATIENT
  Sex: Female

DRUGS (1)
  1. ENBREL [Suspect]
     Indication: RHEUMATOID ARTHRITIS
     Dates: start: 20000801

REACTIONS (4)
  - RED BLOOD CELL SEDIMENTATION RATE DECREASED [None]
  - ABDOMINAL DISCOMFORT [None]
  - COUGH [None]
  - NASOPHARYNGITIS [None]
